FAERS Safety Report 19323453 (Version 1)
Quarter: 2021Q2

REPORT INFORMATION
  Report Type: Spontaneous
  Country: US (occurrence: US)
  Receive Date: 20210528
  Receipt Date: 20210528
  Transmission Date: 20210717
  Serious: No
  Sender: FDA-Public Use
  Company Number: US-ALLERGAN-2107762US

PATIENT
  Sex: Female
  Weight: 62 kg

DRUGS (1)
  1. BENTYL [Suspect]
     Active Substance: DICYCLOMINE HYDROCHLORIDE
     Indication: IRRITABLE BOWEL SYNDROME
     Dosage: UNK, PRN

REACTIONS (5)
  - Ventricular extrasystoles [Recovered/Resolved]
  - Tremor [Recovered/Resolved]
  - Blood pressure decreased [Recovered/Resolved]
  - Heart rate increased [Recovered/Resolved]
  - Syncope [Recovered/Resolved]
